FAERS Safety Report 10541198 (Version 1)
Quarter: 2014Q4

REPORT INFORMATION
  Report Type: Spontaneous
  Country: US (occurrence: None)
  Receive Date: 20141010
  Receipt Date: 20141010
  Transmission Date: 20150529
  Serious: Yes (Hospitalization)
  Sender: FDA-Public Use
  Company Number: 163-POMAL-14051188

PATIENT
  Age: 59 Year
  Sex: Male

DRUGS (7)
  1. POMALYST [Suspect]
     Active Substance: POMALIDOMIDE
     Indication: PLASMA CELL MYELOMA
     Route: 048
     Dates: start: 20140208
  2. GABAPENTIN. [Concomitant]
     Active Substance: GABAPENTIN
  3. DRONABINOL. [Concomitant]
     Active Substance: DRONABINOL
  4. MORPHINE [Concomitant]
     Active Substance: MORPHINE
  5. LORAZEPAM. [Concomitant]
     Active Substance: LORAZEPAM
  6. ONDANSETRON [Concomitant]
     Active Substance: ONDANSETRON
  7. SOMA [Concomitant]
     Active Substance: CARISOPRODOL

REACTIONS (1)
  - Pain [None]

NARRATIVE: CASE EVENT DATE: 20140502
